FAERS Safety Report 23103751 (Version 1)
Quarter: 2023Q4

REPORT INFORMATION
  Report Type: Spontaneous
  Country: US (occurrence: US)
  Receive Date: 20231025
  Receipt Date: 20231025
  Transmission Date: 20240109
  Serious: No
  Sender: FDA-Public Use
  Company Number: US-PFIZER INC-202300334887

PATIENT
  Age: 59 Year
  Sex: Female

DRUGS (3)
  1. PAXLOVID [Suspect]
     Active Substance: NIRMATRELVIR\RITONAVIR
     Indication: COVID-19 treatment
     Dosage: UNK
     Dates: start: 20231010, end: 20231018
  2. NATURE MADE CALCIUM MAGNESIUM ZINC [Concomitant]
     Dosage: UNK
     Dates: start: 20230401, end: 20231008
  3. MENADIONE [Concomitant]
     Active Substance: MENADIONE
     Dosage: UNK
     Dates: start: 20230401, end: 20231008

REACTIONS (2)
  - COVID-19 [Recovering/Resolving]
  - Disease recurrence [Recovering/Resolving]

NARRATIVE: CASE EVENT DATE: 20231017
